FAERS Safety Report 25097121 (Version 1)
Quarter: 2025Q1

REPORT INFORMATION
  Report Type: Spontaneous
  Country: CN (occurrence: CN)
  Receive Date: 20250319
  Receipt Date: 20250319
  Transmission Date: 20250409
  Serious: Yes (Hospitalization)
  Sender: BEIGENE
  Company Number: CN-BEIGENE-BGN-2025-004159

PATIENT
  Age: 70 Year
  Weight: 45 kg

DRUGS (12)
  1. TISLELIZUMAB [Suspect]
     Active Substance: TISLELIZUMAB
     Indication: Lung neoplasm malignant
  2. TISLELIZUMAB [Suspect]
     Active Substance: TISLELIZUMAB
     Route: 041
  3. TISLELIZUMAB [Suspect]
     Active Substance: TISLELIZUMAB
     Route: 041
  4. TISLELIZUMAB [Suspect]
     Active Substance: TISLELIZUMAB
  5. DOCETAXEL [Suspect]
     Active Substance: DOCETAXEL
     Indication: Lung neoplasm malignant
     Route: 041
  6. DOCETAXEL [Suspect]
     Active Substance: DOCETAXEL
  7. NEDAPLATIN [Suspect]
     Active Substance: NEDAPLATIN
     Indication: Lung neoplasm malignant
  8. NEDAPLATIN [Suspect]
     Active Substance: NEDAPLATIN
     Route: 041
  9. NEDAPLATIN [Suspect]
     Active Substance: NEDAPLATIN
  10. NEDAPLATIN [Suspect]
     Active Substance: NEDAPLATIN
     Route: 041
  11. IRON DEXTRAN [Concomitant]
     Active Substance: IRON DEXTRAN
     Indication: Haemoglobin decreased
     Dosage: 50 MILLIGRAM, TID
     Route: 048
  12. IRON DEXTRAN [Concomitant]
     Active Substance: IRON DEXTRAN
     Dosage: 50 MILLIGRAM, TID

REACTIONS (1)
  - Myelosuppression [Recovering/Resolving]
